FAERS Safety Report 5190153-2 (Version None)
Quarter: 2006Q4

REPORT INFORMATION
  Report Type: 
  Country: None (occurrence: None)
  Receive Date: 20061222
  Receipt Date: 20061214
  Transmission Date: 20070319
  Serious: Yes (Other)
  Sender: FDA-Public Use
  Company Number: FR-JNJFOC-20061204583

PATIENT
  Sex: Male

DRUGS (2)
  1. EPITOMAX [Suspect]
     Route: 048
  2. EPITOMAX [Suspect]
     Indication: EPILEPSY
     Route: 048

REACTIONS (1)
  - URINARY TRACT OBSTRUCTION [None]
